FAERS Safety Report 6768136-8 (Version None)
Quarter: 2010Q2

REPORT INFORMATION
  Report Type: 
  Country: None (occurrence: None)
  Receive Date: 20100614
  Receipt Date: 20100609
  Transmission Date: 20101027
  Serious: Yes (Disabling)
  Sender: FDA-Public Use
  Company Number: US-SANOFI-AVENTIS-2010SA033503

PATIENT
  Age: 37 Year
  Sex: Male

DRUGS (2)
  1. LOVENOX [Suspect]
     Route: 065
  2. ASPIRIN [Suspect]
     Route: 065

REACTIONS (2)
  - PARAPLEGIA [None]
  - SPINAL HAEMATOMA [None]
